FAERS Safety Report 21044923 (Version 1)
Quarter: 2022Q3

REPORT INFORMATION
  Report Type: Spontaneous
  Country: ZA (occurrence: ZA)
  Receive Date: 20220705
  Receipt Date: 20220705
  Transmission Date: 20221026
  Serious: Yes (Other)
  Sender: FDA-Public Use
  Company Number: ZA-GILEAD-2022-0587902

PATIENT
  Sex: Male

DRUGS (1)
  1. BIKTARVY [Suspect]
     Active Substance: BICTEGRAVIR SODIUM\EMTRICITABINE\TENOFOVIR ALAFENAMIDE FUMARATE
     Indication: Suicide attempt
     Dosage: 2 DOSAGE FORM, ONCE
     Route: 065

REACTIONS (2)
  - Suicide attempt [Recovering/Resolving]
  - Prescription drug used without a prescription [Recovered/Resolved]
